FAERS Safety Report 5623654-0 (Version None)
Quarter: 2008Q1

REPORT INFORMATION
  Report Type: 
  Country: None (occurrence: None)
  Receive Date: 20080212
  Receipt Date: 20080207
  Transmission Date: 20080703
  Serious: Yes (Death, Hospitalization)
  Sender: FDA-Public Use
  Company Number: US-WYE-H01750507

PATIENT
  Age: 74 Year
  Sex: Male
  Weight: 72 kg

DRUGS (14)
  1. TORISEL [Suspect]
     Indication: MANTLE CELL LYMPHOMA
     Dosage: 25 MG OVER 30 MINUTES
     Route: 042
     Dates: start: 20071126, end: 20071126
  2. TORISEL [Suspect]
     Dosage: 25 MG OVER 30 MINUTES
     Route: 042
     Dates: start: 20071203, end: 20071203
  3. ALBUTEROL [Concomitant]
  4. ALLOPURINOL [Concomitant]
  5. IMODIUM [Concomitant]
  6. ADVAIR DISKUS 100/50 [Concomitant]
  7. DIGITEK [Concomitant]
  8. LIPITOR [Concomitant]
  9. REQUIP [Concomitant]
  10. PROTONIX [Concomitant]
  11. ATARAX [Concomitant]
  12. RITUXIMAB [Suspect]
     Indication: MANTLE CELL LYMPHOMA
     Dosage: CYCLE 1 DAY 1, 375 MG/M2 AT A RATE OF 50MG/HOUR INCREASING BY 50 MG/HOUR EVERY 30 MIN  TO MAX
     Route: 042
     Dates: start: 20071126, end: 20071126
  13. RITUXIMAB [Suspect]
     Dosage: CYCLE 1 DAY 8, 375 MG/M2 AT INITIAL RATE OF 100 MG/HR INCREASE BY 100 MG/HR EVERY 30 MIN TO A MAX OF
     Route: 042
     Dates: start: 20071203, end: 20071203
  14. MOTRIN [Concomitant]

REACTIONS (1)
  - VENTRICULAR FIBRILLATION [None]
